FAERS Safety Report 17103211 (Version 1)
Quarter: 2019Q4

REPORT INFORMATION
  Report Type: Spontaneous
  Country: BR (occurrence: BR)
  Receive Date: 20191203
  Receipt Date: 20191203
  Transmission Date: 20200122
  Serious: Yes (Hospitalization, Other)
  Sender: FDA-Public Use
  Company Number: BR-AMGEN-BRASP2019200366

PATIENT
  Age: 46 Year
  Sex: Female

DRUGS (3)
  1. METHYLDOPA. [Concomitant]
     Active Substance: METHYLDOPA
     Indication: HYPERTENSION
     Dosage: UNK
  2. PROCORALAN [Suspect]
     Active Substance: IVABRADINE
     Indication: CORONARY ARTERY DISEASE
     Dosage: 5 MILLIGRAM, BID
     Route: 065
     Dates: start: 201911, end: 201911
  3. PROCORALAN [Suspect]
     Active Substance: IVABRADINE
     Dosage: 7.5 MILLIGRAM, BID
     Route: 065
     Dates: start: 201911

REACTIONS (5)
  - Intentional product use issue [Recovered/Resolved]
  - Exposure during pregnancy [Recovered/Resolved]
  - Hospitalisation [Recovered/Resolved]
  - Premature baby [Recovered/Resolved]
  - Third trimester pregnancy [Recovered/Resolved]

NARRATIVE: CASE EVENT DATE: 201911
